FAERS Safety Report 24722442 (Version 1)
Quarter: 2024Q4

REPORT INFORMATION
  Report Type: Spontaneous
  Country: US (occurrence: US)
  Receive Date: 20241211
  Receipt Date: 20241211
  Transmission Date: 20250114
  Serious: No
  Sender: PFIZER
  Company Number: US-PFIZER INC-202400317651

PATIENT
  Age: 71 Year
  Sex: Female

DRUGS (5)
  1. LORBRENA [Suspect]
     Active Substance: LORLATINIB
     Indication: Lung carcinoma cell type unspecified stage IV
     Dosage: 75 MILLIGRAMS, ORALLY, ONCE A DAY
     Route: 048
     Dates: start: 202101
  2. ROSUVASTATIN [Concomitant]
     Active Substance: ROSUVASTATIN
  3. EZETIMIBE [Concomitant]
     Active Substance: EZETIMIBE
  4. IBUPROFEN [Concomitant]
     Active Substance: IBUPROFEN
  5. VITAMIN D3 [Concomitant]
     Active Substance: CHOLECALCIFEROL

REACTIONS (5)
  - Heart rate irregular [Unknown]
  - Cardiac disorder [Unknown]
  - Heart rate decreased [Unknown]
  - Muscle spasms [Unknown]
  - Extrasystoles [Unknown]

NARRATIVE: CASE EVENT DATE: 20230101
